FAERS Safety Report 18273046 (Version 1)
Quarter: 2020Q3

REPORT INFORMATION
  Report Type: Spontaneous
  Country: US (occurrence: US)
  Receive Date: 20200916
  Receipt Date: 20200916
  Transmission Date: 20201103
  Serious: No
  Sender: FDA-Public Use
  Company Number: None

PATIENT
  Age: 60 Year
  Sex: Female
  Weight: 83.25 kg

DRUGS (15)
  1. EMGALITY [Suspect]
     Active Substance: GALCANEZUMAB-GNLM
     Indication: CRANIOCEREBRAL INJURY
     Dosage: ?          QUANTITY:1 INJECTION(S);OTHER FREQUENCY:1 EVERY 28 DAYS;OTHER ROUTE:INJECTION ON THIGH MUSCLE?
     Dates: start: 20181018
  2. ABROMADINE [Concomitant]
  3. RESTASIS [Concomitant]
     Active Substance: CYCLOSPORINE
  4. LOW DOSE ASPIRIN [Concomitant]
     Active Substance: ASPIRIN
  5. TUMERIC [Concomitant]
     Active Substance: HERBALS\TURMERIC
  6. VITAMIN C [Concomitant]
     Active Substance: ASCORBIC ACID
  7. NAMENDA [Concomitant]
     Active Substance: MEMANTINE HYDROCHLORIDE
  8. CENTRUM [Concomitant]
     Active Substance: VITAMINS
  9. LEVOTHROXIN [Concomitant]
  10. VIT D [Concomitant]
     Active Substance: VITAMIN D NOS
  11. EMGALITY [Suspect]
     Active Substance: GALCANEZUMAB-GNLM
     Indication: MIGRAINE
     Dosage: ?          QUANTITY:1 INJECTION(S);OTHER FREQUENCY:1 EVERY 28 DAYS;OTHER ROUTE:INJECTION ON THIGH MUSCLE?
     Dates: start: 20181018
  12. LATANOPROST. [Concomitant]
     Active Substance: LATANOPROST
  13. VOLTAREN [Concomitant]
     Active Substance: DICLOFENAC SODIUM
  14. TREXIMET [Suspect]
     Active Substance: NAPROXEN SODIUM\SUMATRIPTAN SUCCINATE
  15. FISH OIL [Concomitant]
     Active Substance: FISH OIL

REACTIONS (2)
  - Rash [None]
  - Autoimmune disorder [None]

NARRATIVE: CASE EVENT DATE: 20190101
